FAERS Safety Report 8974440 (Version 2)
Quarter: 2013Q1

REPORT INFORMATION
  Report Type: Spontaneous
  Country: IN (occurrence: None)
  Receive Date: 20121213
  Receipt Date: 20130115
  Transmission Date: 20140127
  Serious: Yes (Other)
  Sender: FDA-Public Use
  Company Number: 2012P1066716

PATIENT
  Age: 43 Year
  Sex: Female

DRUGS (1)
  1. AMPICILLIN [Suspect]
     Indication: TOOTHACHE

REACTIONS (4)
  - Dermatitis [None]
  - Myalgia [None]
  - Arthralgia [None]
  - Heart rate increased [None]
